FAERS Safety Report 7471220-7 (Version None)
Quarter: 2011Q2

REPORT INFORMATION
  Report Type: 
  Country: None (occurrence: None)
  Receive Date: 20110510
  Receipt Date: 20110429
  Transmission Date: 20111010
  Serious: Yes (Other)
  Sender: FDA-Public Use
  Company Number: PHHY2011IT37417

PATIENT

DRUGS (2)
  1. GLEEVEC [Suspect]
     Indication: CHRONIC MYELOID LEUKAEMIA
     Dosage: 600 MG
     Route: 048
  2. GLEEVEC [Suspect]
     Dosage: 400 MG
     Route: 048

REACTIONS (2)
  - BONE MARROW FAILURE [None]
  - GASTROINTESTINAL TOXICITY [None]
